FAERS Safety Report 10982096 (Version 1)
Quarter: 2015Q2

REPORT INFORMATION
  Report Type: Spontaneous
  Country: JP (occurrence: JP)
  Receive Date: 20150403
  Receipt Date: 20150403
  Transmission Date: 20150821
  Serious: Yes (Other)
  Sender: FDA-Public Use
  Company Number: JP-009507513-1504JPN000998

PATIENT
  Age: 62 Year
  Sex: Male

DRUGS (3)
  1. PEGINTRON [Suspect]
     Active Substance: PEGINTERFERON ALFA-2B
     Indication: CHRONIC HEPATITIS C
     Dosage: 100 MICROGRAM, 1 IN 1 WEEK
     Route: 058
     Dates: start: 20141008, end: 20141014
  2. REBETOL [Suspect]
     Active Substance: RIBAVIRIN
     Indication: CHRONIC HEPATITIS C
     Dosage: 800 MG, 1 IN 1 DAY
     Route: 048
     Dates: start: 20141008, end: 20141014
  3. SIMEPREVIR [Suspect]
     Active Substance: SIMEPREVIR
     Indication: CHRONIC HEPATITIS C
     Dosage: 100 MG, 1 IN 1 DAY
     Route: 048
     Dates: start: 20141008, end: 20141014

REACTIONS (4)
  - Erythema multiforme [Recovered/Resolved]
  - Malaise [Unknown]
  - Decreased appetite [Recovered/Resolved]
  - Pyrexia [Recovered/Resolved]

NARRATIVE: CASE EVENT DATE: 20141008
